FAERS Safety Report 14682940 (Version 1)
Quarter: 2018Q1

REPORT INFORMATION
  Report Type: Spontaneous
  Country: US (occurrence: US)
  Receive Date: 20180327
  Receipt Date: 20180327
  Transmission Date: 20180509
  Serious: No
  Sender: FDA-Public Use
  Company Number: US-AUROBINDO-AUR-APU-2017-33894

PATIENT
  Sex: Male
  Weight: 77.11 kg

DRUGS (3)
  1. AMPHETAMINE [Concomitant]
     Active Substance: AMPHETAMINE
     Indication: DEPRESSION
     Dosage: 10 MG, EVERY MORNING
     Route: 048
  2. GABAPENTIN CAPSULES 300 MG [Suspect]
     Active Substance: GABAPENTIN
     Indication: INAPPROPRIATE AFFECT
     Dosage: 300 MG, ONCE A DAY (ONE IN EVENING)
     Route: 065
  3. WELLBUTRIN [Concomitant]
     Active Substance: BUPROPION HYDROCHLORIDE
     Indication: INAPPROPRIATE AFFECT
     Dosage: 100 MG, TWO IN THE MORNING AND TWO IN THE EVENING
     Route: 065

REACTIONS (1)
  - Off label use [Unknown]
